FAERS Safety Report 4493240-7 (Version None)
Quarter: 2004Q4

REPORT INFORMATION
  Report Type: 
  Country: None (occurrence: None)
  Receive Date: 20041101
  Receipt Date: 20041022
  Transmission Date: 20050328
  Serious: Yes (Other)
  Sender: FDA-Public Use
  Company Number: RB-1022-2004

PATIENT
  Age: 38 Year
  Sex: Male

DRUGS (2)
  1. BUPRENORPHINE HCL [Suspect]
     Dosage: 0.4 MG IV
     Route: 042
  2. CLONAZEPAM [Concomitant]

REACTIONS (3)
  - HAEMOPTYSIS [None]
  - INTENTIONAL MISUSE [None]
  - PULMONARY GRANULOMA [None]
